FAERS Safety Report 9850036 (Version 2)
Quarter: 2014Q1

REPORT INFORMATION
  Report Type: Spontaneous
  Country: US (occurrence: None)
  Receive Date: 20140124
  Receipt Date: 20140129
  Transmission Date: 20141002
  Serious: Yes (Hospitalization)
  Sender: FDA-Public Use
  Company Number: A1057592A

PATIENT
  Age: 12 Year
  Sex: Male

DRUGS (3)
  1. CALCIUM CARBONATE [Suspect]
     Indication: HUNGER
     Route: 048
     Dates: start: 20140116
  2. ETHANOL [Suspect]
     Route: 048
  3. CANNABIS (CANNABIS) [Suspect]

REACTIONS (6)
  - Overdose [None]
  - Delirium [None]
  - Stupor [None]
  - Regurgitation [None]
  - Somnolence [None]
  - Acidosis [None]
